FAERS Safety Report 12612852 (Version 3)
Quarter: 2016Q3

REPORT INFORMATION
  Report Type: Spontaneous
  Country: FR (occurrence: FR)
  Receive Date: 20160802
  Receipt Date: 20160906
  Transmission Date: 20161109
  Serious: Yes (Other)
  Sender: FDA-Public Use
  Company Number: FR-AMGEN-FRASP2016098968

PATIENT
  Age: 73 Year
  Sex: Female
  Weight: 56 kg

DRUGS (7)
  1. CARFILZOMIB [Suspect]
     Active Substance: CARFILZOMIB
     Dosage: 27 MG/M2, DAY ONE, TWO DAY EIGHT, NINE AND DAY FIFTEEN, SIXTEEN
     Route: 042
     Dates: start: 20160803
  2. DEXAMETHASONE. [Concomitant]
     Active Substance: DEXAMETHASONE
     Indication: PLASMA CELL MYELOMA
     Dosage: 40 MG, UNK
  3. CARFILZOMIB [Suspect]
     Active Substance: CARFILZOMIB
     Dosage: 27 MG/M2, DAY EIGHT, DAY NINE, DAY FIFTEEN, AND DAY SIXTEEN
     Route: 042
     Dates: end: 20160721
  4. REVLIMID [Suspect]
     Active Substance: LENALIDOMIDE
     Indication: PLASMA CELL MYELOMA
     Dosage: 15 MG, DAY 1 AND 2
     Route: 065
     Dates: start: 20160702, end: 20160714
  5. CARFILZOMIB [Suspect]
     Active Substance: CARFILZOMIB
     Indication: PLASMA CELL MYELOMA
     Dosage: 20 MG/M2, DAY ONE AND TWO.
     Route: 042
     Dates: start: 20160702
  6. LENALIDOMIDE [Concomitant]
     Active Substance: LENALIDOMIDE
     Dosage: 25 MG, UNK
  7. DEXAMETHASONE. [Concomitant]
     Active Substance: DEXAMETHASONE
     Dosage: 20 MG, DAY 1, 8 AND DAY L5, 22
     Dates: start: 20160702

REACTIONS (3)
  - Renal failure [Unknown]
  - Asthenia [Not Recovered/Not Resolved]
  - Cytopenia [Not Recovered/Not Resolved]

NARRATIVE: CASE EVENT DATE: 2016
